FAERS Safety Report 22099944 (Version 5)
Quarter: 2024Q2

REPORT INFORMATION
  Report Type: Spontaneous
  Country: US (occurrence: US)
  Receive Date: 20230315
  Receipt Date: 20240617
  Transmission Date: 20240716
  Serious: Yes (Other)
  Sender: FDA-Public Use
  Company Number: US-BRISTOL-MYERS SQUIBB COMPANY-2023-037899

PATIENT
  Age: 72 Year
  Sex: Male
  Weight: 86.18 kg

DRUGS (3)
  1. REVLIMID [Suspect]
     Active Substance: LENALIDOMIDE
     Indication: Plasma cell myeloma
     Dosage: DAILY X 7 DAYS ON FOLLOWED BY 7 DAYS OFF THEN REPEAT
     Route: 048
     Dates: start: 20200425
  2. REVLIMID [Suspect]
     Active Substance: LENALIDOMIDE
     Dosage: FREQUENCY: DAYS 1-7 AND 15-21 EVERY 28 DAYS?D1-7 THEN OFF FOR 7 DAYS, REPEAT
     Route: 048
     Dates: start: 20210705
  3. REVLIMID [Suspect]
     Active Substance: LENALIDOMIDE
     Dosage: FREQUENCY: TAKE DAILY FOR 7 DAYS ON AND THEN 7 DAYS OFF. THEN REPEAT.
     Route: 048

REACTIONS (8)
  - Bronchitis [Unknown]
  - Off label use [Unknown]
  - Fatigue [Unknown]
  - Anaemia [Unknown]
  - Arthralgia [Not Recovered/Not Resolved]
  - Hepatic enzyme increased [Not Recovered/Not Resolved]
  - Depression [Not Recovered/Not Resolved]
  - Skin cancer [Not Recovered/Not Resolved]

NARRATIVE: CASE EVENT DATE: 20230307
